FAERS Safety Report 9781419 (Version 3)
Quarter: 2014Q3

REPORT INFORMATION
  Report Type: Spontaneous
  Country: US (occurrence: US)
  Receive Date: 20131224
  Receipt Date: 20140819
  Transmission Date: 20150326
  Serious: Yes (Hospitalization)
  Sender: FDA-Public Use
  Company Number: US-GILEAD-2013-0090544

PATIENT
  Age: 45 Year
  Sex: Female

DRUGS (15)
  1. COREG [Concomitant]
     Active Substance: CARVEDILOL
  2. XANAX [Concomitant]
     Active Substance: ALPRAZOLAM
  3. PERCOCET [Concomitant]
     Active Substance: ACETAMINOPHEN\OXYCODONE HYDROCHLORIDE
  4. LETAIRIS [Suspect]
     Active Substance: AMBRISENTAN
     Indication: CONGENITAL CORONARY ARTERY MALFORMATION
  5. LYRICA [Concomitant]
     Active Substance: PREGABALIN
  6. SILDENAFIL CITRATE. [Concomitant]
     Active Substance: SILDENAFIL CITRATE
  7. PROZAC [Concomitant]
     Active Substance: FLUOXETINE HYDROCHLORIDE
  8. PLAVIX [Concomitant]
     Active Substance: CLOPIDOGREL BISULFATE
  9. LETAIRIS [Suspect]
     Active Substance: AMBRISENTAN
     Indication: PULMONARY ARTERIAL HYPERTENSION
     Dosage: 5 MG, UNK
     Route: 065
     Dates: start: 20130812
  10. LASIX [Concomitant]
     Active Substance: FUROSEMIDE
  11. NITROSTAT [Concomitant]
     Active Substance: NITROGLYCERIN
  12. LISINOPRIL. [Concomitant]
     Active Substance: LISINOPRIL
  13. POTASSIUM CHLORIDE. [Concomitant]
     Active Substance: POTASSIUM CHLORIDE
  14. MAGNESIUM [Concomitant]
     Active Substance: MAGNESIUM
  15. ASPIRIN                            /00002701/ [Concomitant]
     Active Substance: ASPIRIN

REACTIONS (5)
  - Bronchitis [Unknown]
  - Catheterisation cardiac [Unknown]
  - Dyspnoea [Unknown]
  - Vomiting [Unknown]
  - Unevaluable event [Unknown]
